FAERS Safety Report 21692762 (Version 1)
Quarter: 2022Q4

REPORT INFORMATION
  Report Type: Spontaneous
  Country: US (occurrence: None)
  Receive Date: 20221206
  Receipt Date: 20221206
  Transmission Date: 20230113
  Serious: Yes (Hospitalization)
  Sender: FDA-Public Use
  Company Number: None

PATIENT
  Sex: Female

DRUGS (1)
  1. IBRANCE [Suspect]
     Active Substance: PALBOCICLIB
     Indication: Breast cancer
     Dosage: OTHER FREQUENCY : 1-21 OF 28 D CYCLE;?
     Route: 048
     Dates: start: 20201029

REACTIONS (3)
  - Nephrolithiasis [None]
  - Sepsis [None]
  - Therapy interrupted [None]
